FAERS Safety Report 15739409 (Version 1)
Quarter: 2018Q4

REPORT INFORMATION
  Report Type: Spontaneous
  Country: US (occurrence: US)
  Receive Date: 20181218
  Receipt Date: 20181218
  Transmission Date: 20190205
  Serious: No
  Sender: FDA-Public Use
  Company Number: None

PATIENT
  Age: 75 Year
  Sex: Female
  Weight: 72.9 kg

DRUGS (10)
  1. ALLAVERT [Concomitant]
  2. ELIQUIS [Concomitant]
     Active Substance: APIXABAN
  3. FLONASE [Concomitant]
     Active Substance: FLUTICASONE PROPIONATE
  4. ARMOUR THYROID [Concomitant]
     Active Substance: THYROID, PORCINE
  5. VITAMIN D3 [Concomitant]
     Active Substance: CHOLECALCIFEROL
  6. CLONAZEPAM 1 MG [Suspect]
     Active Substance: CLONAZEPAM
     Indication: RESTLESS LEGS SYNDROME
     Dosage: ?          QUANTITY:2 TABLET(S);?
     Route: 048
     Dates: start: 20181216, end: 20181218
  7. WELLBUTRIN [Concomitant]
     Active Substance: BUPROPION HYDROCHLORIDE
  8. IRON [Concomitant]
     Active Substance: IRON
  9. ADVIL [Concomitant]
     Active Substance: IBUPROFEN
  10. TOPROL XL [Concomitant]
     Active Substance: METOPROLOL SUCCINATE

REACTIONS (3)
  - Therapeutic response changed [None]
  - Treatment failure [None]
  - Product substitution issue [None]

NARRATIVE: CASE EVENT DATE: 20181218
